FAERS Safety Report 9936965 (Version 1)
Quarter: 2014Q1

REPORT INFORMATION
  Report Type: Spontaneous
  Country: US (occurrence: None)
  Receive Date: 20140115
  Receipt Date: 20140115
  Transmission Date: 20141002
  Serious: No
  Sender: FDA-Public Use
  Company Number: 2013US002548

PATIENT
  Age: 73 Year
  Sex: Female
  Weight: 77 kg

DRUGS (12)
  1. ICLUSIG (PONATINIB) TABLET, 15MG [Suspect]
     Indication: CHRONIC MYELOID LEUKAEMIA
     Route: 048
     Dates: start: 20130403
  2. STOOL SOFTENER (DOCUSATE SODIUM) [Concomitant]
  3. POTASSIUM (POTASSIUM) [Concomitant]
  4. THEOPHYLLINE (THEOPHYLLINE) [Concomitant]
  5. MIRALAX (MACROGOL) [Concomitant]
  6. GABAPENTIN (GABAPENTIN) [Concomitant]
  7. RANITIDINE (RANITIDINE HYDROCHLORIDE) [Concomitant]
  8. TRAMADOL HYDROCHLORIDE (TRAMADOL HYDROCHLORIDE) [Concomitant]
  9. HYDRALAZINE (HYDRALAZINE) [Concomitant]
  10. ADVAIR INHALER (FLUTICASONE PROPIONATE, SALMETEROL XINAFOATE) INHALER [Concomitant]
  11. SPIRIVA (TIOTROPIUM BROMIDE) (TIOTROPIUM BROMIDE) [Concomitant]
  12. AMLODIPINE-BENAZEPRIL (AMLODIPINE W/BENAZEPRIL) [Concomitant]

REACTIONS (1)
  - Fatigue [None]
